FAERS Safety Report 25188975 (Version 1)
Quarter: 2025Q2

REPORT INFORMATION
  Report Type: Spontaneous
  Country: US (occurrence: US)
  Receive Date: 20250411
  Receipt Date: 20250411
  Transmission Date: 20250717
  Serious: No
  Sender: TAKEDA
  Company Number: US-TAKEDA-2025TUS035842

PATIENT
  Sex: Male

DRUGS (3)
  1. PREVACID [Suspect]
     Active Substance: LANSOPRAZOLE
     Indication: Abdominal pain
     Dates: start: 20241111, end: 20241212
  2. RITLECITINIB [Suspect]
     Active Substance: RITLECITINIB
     Indication: Product used for unknown indication
     Dosage: 100 MILLIGRAM, QD
     Dates: start: 20240412, end: 20241127
  3. PEPCID [Concomitant]
     Active Substance: FAMOTIDINE
     Indication: Abdominal pain
     Dates: start: 20241111, end: 20241212

REACTIONS (2)
  - No adverse event [Unknown]
  - Product use in unapproved indication [Unknown]
